FAERS Safety Report 6751560-7 (Version None)
Quarter: 2010Q2

REPORT INFORMATION
  Report Type: 
  Country: None (occurrence: None)
  Receive Date: 20100602
  Receipt Date: 20100525
  Transmission Date: 20101027
  Serious: Yes (Death)
  Sender: FDA-Public Use
  Company Number: JP-ROCHE-705947

PATIENT
  Age: 78 Year
  Sex: Male

DRUGS (2)
  1. XELODA [Suspect]
     Indication: DRUG USE FOR UNKNOWN INDICATION
     Route: 048
     Dates: start: 20100402, end: 20100503
  2. ELPLAT [Suspect]
     Indication: DRUG USE FOR UNKNOWN INDICATION
     Dosage: ACTION TAKEN: UNKNOWN, FORM: INJECTION, NOTE: DOSAGE IS UNCERTAIN
     Route: 041

REACTIONS (2)
  - ASPHYXIA [None]
  - PNEUMONIA ASPIRATION [None]
